FAERS Safety Report 16327373 (Version 5)
Quarter: 2019Q3

REPORT INFORMATION
  Report Type: Spontaneous
  Country: PT (occurrence: PT)
  Receive Date: 20190517
  Receipt Date: 20190703
  Transmission Date: 20191004
  Serious: Yes (Hospitalization, Other)
  Sender: FDA-Public Use
  Company Number: PT-MYLANLABS-2019M1047352

PATIENT
  Age: 34 Year
  Sex: Male

DRUGS (2)
  1. TRAMADOL. [Suspect]
     Active Substance: TRAMADOL
     Indication: PRODUCT USED FOR UNKNOWN INDICATION
     Dosage: 3 GRAM, TOTAL
     Route: 065
  2. IBUPROFEN. [Suspect]
     Active Substance: IBUPROFEN
     Indication: PRODUCT USED FOR UNKNOWN INDICATION
     Dosage: 4 GRAM, TOTAL
     Route: 065

REACTIONS (10)
  - Intentional overdose [Unknown]
  - Blood creatine phosphokinase increased [Unknown]
  - Generalised tonic-clonic seizure [Unknown]
  - Tracheobronchitis [Unknown]
  - Tachypnoea [Unknown]
  - Epilepsy [Unknown]
  - Drug abuse [Unknown]
  - Tachycardia [Unknown]
  - Toxicity to various agents [Unknown]
  - Nystagmus [Unknown]
